FAERS Safety Report 8010408-3 (Version None)
Quarter: 2011Q4

REPORT INFORMATION
  Report Type: 
  Country: None (occurrence: None)
  Receive Date: 20111228
  Receipt Date: 20111219
  Transmission Date: 20120403
  Serious: Yes (Hospitalization)
  Sender: FDA-Public Use
  Company Number: US-BAYER-2011-047820

PATIENT
  Age: 26 Year
  Sex: Female
  Weight: 91 kg

DRUGS (7)
  1. PROVERA [Concomitant]
     Dosage: 10 MG, UNK
     Route: 048
     Dates: start: 20090420, end: 20090818
  2. HYDROCODONE BITARTRATE AND ACETAMINOPHEN [Concomitant]
     Dosage: 5-500 MG
     Route: 048
  3. HYDROCODONE BITARTRATE AND ACETAMINOPHEN [Concomitant]
     Dosage: 7.5-325 MG
     Route: 048
  4. AMOXICILINA CLAV [Concomitant]
     Dosage: 875-125 MG
     Route: 048
  5. YAZ [Suspect]
     Indication: PREMENSTRUAL SYNDROME
  6. ZOFRAN [Concomitant]
     Dosage: 4 MG, UNK
     Route: 048
  7. YAZ [Suspect]
     Indication: CONTRACEPTION
     Dosage: UNK
     Route: 048
     Dates: start: 20090301, end: 20090701

REACTIONS (4)
  - PULMONARY INFARCTION [None]
  - PULMONARY EMBOLISM [None]
  - PAIN [None]
  - INJURY [None]
